FAERS Safety Report 4412932-9 (Version None)
Quarter: 2004Q3

REPORT INFORMATION
  Report Type: 
  Country: None (occurrence: None)
  Receive Date: 20040730
  Receipt Date: 20040730
  Transmission Date: 20050211
  Serious: Yes (Hospitalization)
  Sender: FDA-Public Use
  Company Number: None

PATIENT
  Age: 70 Year
  Sex: Male
  Weight: 82.5547 kg

DRUGS (14)
  1. METOPROLOL [Suspect]
     Indication: CORONARY ARTERY DISEASE
     Dosage: 25 MG BID
     Dates: start: 20030516, end: 20040420
  2. CLONAZEPAM [Concomitant]
  3. THIOTHIXENE HCL [Concomitant]
  4. SIMVASTATIN [Concomitant]
  5. AMANTADINE HCL [Concomitant]
  6. PSYLLIUM SF [Concomitant]
  7. DOCUSATE CA [Concomitant]
  8. PAROXETINE HCL [Concomitant]
  9. ASCORBIC ACID [Concomitant]
  10. CA;, 500 MG/VITAMIN D [Concomitant]
  11. CLOPIDOGREL BISULFATE [Concomitant]
  12. CALCITONIN-SALMON [Concomitant]
  13. OMEPRAZOLE [Concomitant]
  14. TERAZOSIN HCL [Concomitant]

REACTIONS (3)
  - BRADYCARDIA [None]
  - CARDIOVASCULAR FUNCTION TEST ABNORMAL [None]
  - TILT TABLE TEST [None]
